FAERS Safety Report 14015811 (Version 5)
Quarter: 2018Q2

REPORT INFORMATION
  Report Type: Spontaneous
  Country: BG (occurrence: BG)
  Receive Date: 20170927
  Receipt Date: 20180402
  Transmission Date: 20180711
  Serious: Yes (Death, Hospitalization, Other)
  Sender: FDA-Public Use
  Company Number: BG-PFIZER INC-2017417248

PATIENT
  Age: 76 Year
  Sex: Male

DRUGS (11)
  1. AMLODIPINE [Concomitant]
     Active Substance: AMLODIPINE BESYLATE
     Dosage: UNK
  2. CORDARONE [Suspect]
     Active Substance: AMIODARONE HYDROCHLORIDE
     Indication: VENTRICULAR TACHYCARDIA
     Dosage: 200 MG, 3X/DAY
     Route: 048
     Dates: start: 20161112
  3. CORDARONE [Suspect]
     Active Substance: AMIODARONE HYDROCHLORIDE
     Dosage: 1 DF, 2X/DAY
     Route: 048
     Dates: start: 20161114
  4. MOXOGAMMA [Concomitant]
     Active Substance: MOXONIDINE
     Dosage: UNK
  5. ISOSORBIDE MONONITRATE. [Concomitant]
     Active Substance: ISOSORBIDE MONONITRATE
     Dosage: UNK
  6. CORDARONE [Suspect]
     Active Substance: AMIODARONE HYDROCHLORIDE
     Dosage: 200 MG, 2X/DAY
     Route: 048
     Dates: start: 20161113
  7. CORDARONE [Suspect]
     Active Substance: AMIODARONE HYDROCHLORIDE
     Dosage: 400 MG, DAILY
     Route: 048
     Dates: start: 20161113
  8. BISOSTAD [Concomitant]
     Dosage: UNK
  9. CORDARONE [Suspect]
     Active Substance: AMIODARONE HYDROCHLORIDE
     Indication: ARRHYTHMIA
     Dosage: 200 MG, 3X/DAY
     Route: 048
     Dates: start: 20161111
  10. MICARDIS [Concomitant]
     Active Substance: TELMISARTAN
     Dosage: UNK
  11. CORDARONE [Suspect]
     Active Substance: AMIODARONE HYDROCHLORIDE
     Dosage: 1 DF, UNK
     Route: 048
     Dates: start: 20161115, end: 20161128

REACTIONS (26)
  - Bronchospasm [Fatal]
  - Diarrhoea [Unknown]
  - Vomiting [Unknown]
  - Asthenia [Unknown]
  - Mouth ulceration [Unknown]
  - Bradycardia [Unknown]
  - Photosensitivity reaction [Unknown]
  - Oedema peripheral [Unknown]
  - Hyperhidrosis [Unknown]
  - Nasal congestion [Unknown]
  - Hallucination [Unknown]
  - Poisoning [Fatal]
  - Pleural effusion [Unknown]
  - Pneumonia [Unknown]
  - Fatigue [Unknown]
  - Nasopharyngitis [Unknown]
  - Cardiac failure [Fatal]
  - Pyrexia [Unknown]
  - Rhinitis [Unknown]
  - Renal impairment [Unknown]
  - Haemorrhage subcutaneous [Unknown]
  - Hypersensitivity [Unknown]
  - Dyspnoea [Unknown]
  - Weight decreased [Unknown]
  - Pleurisy [Unknown]
  - Faeces pale [Unknown]

NARRATIVE: CASE EVENT DATE: 20161114
